FAERS Safety Report 21099103 (Version 3)
Quarter: 2022Q3

REPORT INFORMATION
  Report Type: Other
  Country: US (occurrence: None)
  Receive Date: 20220719
  Receipt Date: 20220829
  Transmission Date: 20221027
  Serious: Yes (Hospitalization, Other)
  Sender: FDA-Public Use
  Company Number: US-ROCHE-3138850

PATIENT
  Age: 55 Year
  Sex: Female
  Weight: 66.738 kg

DRUGS (6)
  1. OCREVUS [Suspect]
     Active Substance: OCRELIZUMAB
     Indication: Multiple sclerosis relapse
     Dosage: UNKNOWN, INFUSE 300MG INTRAVENOUSLY ON DAYS 1 AND 15 THEN INFUSE 600MG INTRAVENOUSLY EVERY 6 MONTHS,
     Route: 042
     Dates: start: 20210720
  2. AMLODIPINE [Concomitant]
     Active Substance: AMLODIPINE BESYLATE
     Indication: Hypertension
     Route: 048
  3. MONTELUKAST SODIUM [Concomitant]
     Active Substance: MONTELUKAST SODIUM
     Indication: Seasonal allergy
     Route: 048
  4. LEVOTHYROXINE [Concomitant]
     Active Substance: LEVOTHYROXINE
     Route: 048
  5. CHOLECALCIFEROL [Concomitant]
     Active Substance: CHOLECALCIFEROL
     Indication: Vitamin D deficiency
     Route: 048
  6. TYSABRI [Concomitant]
     Active Substance: NATALIZUMAB

REACTIONS (8)
  - Pancreatitis [Unknown]
  - Abdominal pain [Recovered/Resolved]
  - Renal cancer [Not Recovered/Not Resolved]
  - Psoriasis [Not Recovered/Not Resolved]
  - COVID-19 [Recovered/Resolved]
  - Hypoaesthesia [Unknown]
  - Malaise [Unknown]
  - Rash [Unknown]

NARRATIVE: CASE EVENT DATE: 20210810
